FAERS Safety Report 4901425-8 (Version None)
Quarter: 2006Q1

REPORT INFORMATION
  Report Type: 
  Country: None (occurrence: None)
  Receive Date: 20060206
  Receipt Date: 20051026
  Transmission Date: 20060701
  Serious: Yes (Hospitalization)
  Sender: FDA-Public Use
  Company Number: PHBS2005ZA15891

PATIENT
  Age: 54 Year
  Sex: Female
  Weight: 75 kg

DRUGS (2)
  1. ZOMETA [Suspect]
     Indication: OSTEOPOROSIS
     Dosage: 1 DF, QMO
     Route: 042
     Dates: start: 20050701
  2. ELTROXIN [Concomitant]
     Dosage: 1.5 MG/D
     Route: 065

REACTIONS (10)
  - ABDOMINAL PAIN LOWER [None]
  - BACK PAIN [None]
  - BONE PAIN [None]
  - EAR PAIN [None]
  - HOSPITALISATION [None]
  - INSOMNIA [None]
  - MUSCULOSKELETAL CHEST PAIN [None]
  - PAIN IN EXTREMITY [None]
  - PAIN IN JAW [None]
  - SHOULDER PAIN [None]
